FAERS Safety Report 25364928 (Version 1)
Quarter: 2025Q2

REPORT INFORMATION
  Report Type: Spontaneous
  Country: ES (occurrence: ES)
  Receive Date: 20250527
  Receipt Date: 20250527
  Transmission Date: 20250717
  Serious: Yes (Death, Hospitalization)
  Sender: TAIHO ONCOLOGY INC
  Company Number: ES-MMM-Otsuka-UFT9W5JM

PATIENT
  Age: 78 Year
  Sex: Male

DRUGS (1)
  1. INQOVI [Suspect]
     Active Substance: CEDAZURIDINE\DECITABINE
     Indication: Acute myeloid leukaemia
     Dosage: 1 DF (35MG/100MG), DAILY (DAYS 1-5) FOR 28-DAY; START DATE:04-JAN-2025
     Route: 048

REACTIONS (2)
  - Critical illness [Fatal]
  - Anuria [Fatal]

NARRATIVE: CASE EVENT DATE: 20250101
